FAERS Safety Report 9519282 (Version 2)
Quarter: 2014Q1

REPORT INFORMATION
  Report Type: Spontaneous
  Country: US (occurrence: None)
  Receive Date: 20130305
  Receipt Date: 20140306
  Transmission Date: 20141002
  Serious: Yes (Other)
  Sender: FDA-Public Use
  Company Number: 163-21880-12103779

PATIENT
  Age: 79 Year
  Sex: Male

DRUGS (7)
  1. REVLIMID [Suspect]
     Indication: PLASMA CELL MYELOMA
     Dosage: 10 MG, 21 IN 21 D, PO
     Route: 048
     Dates: start: 20121012, end: 2012
  2. VYTORIN (INEGY) (UNKNOWN) [Concomitant]
  3. VITRON-C (VITRON-C) (UNKNOWN) [Concomitant]
  4. TAMSULOSIN HCL (TAMSULOSIN HYDROCHLORIDE) (UNKNOWN)? [Concomitant]
  5. BENICAR (OLMESARTAN MEDOXOMIL) (UNKNOWN)? [Concomitant]
  6. AMLODIPINE BESYLATE (AMLODIPINE BESILATE) (UNKNOWN)? [Concomitant]
  7. ALLOPURINOL (ALLOPURINOL) (UNKNOWN) [Concomitant]

REACTIONS (13)
  - Oedema peripheral [None]
  - Decreased appetite [None]
  - Back pain [None]
  - Bedridden [None]
  - Arthralgia [None]
  - Nodule [None]
  - Diarrhoea [None]
  - Nausea [None]
  - Malaise [None]
  - Insomnia [None]
  - Decreased appetite [None]
  - Skin sensitisation [None]
  - Movement disorder [None]
